FAERS Safety Report 15090043 (Version 1)
Quarter: 2018Q2

REPORT INFORMATION
  Report Type: Spontaneous
  Country: US (occurrence: US)
  Receive Date: 20180629
  Receipt Date: 20180629
  Transmission Date: 20180711
  Serious: Yes (Other)
  Sender: FDA-Public Use
  Company Number: US-BAYER-2018-119094

PATIENT
  Age: 50 Year
  Sex: Male

DRUGS (1)
  1. KOGENATE FS [Suspect]
     Active Substance: ANTIHEMOPHILIC FACTOR, HUMAN RECOMBINANT
     Indication: FACTOR VIII DEFICIENCY
     Dosage: 3200 IU, 1 TO 2 TIMES WEEKLY AND EVERY 12-48 HOURS AS NEEDED
     Route: 042
     Dates: start: 20120730

REACTIONS (3)
  - Muscle haemorrhage [None]
  - Haemorrhage [None]
  - Haemarthrosis [None]
